FAERS Safety Report 8814643 (Version 2)
Quarter: 2013Q1

REPORT INFORMATION
  Report Type: Spontaneous
  Country: GB (occurrence: None)
  Receive Date: 20120926
  Receipt Date: 20130314
  Transmission Date: 20140127
  Serious: Yes (Disabling, Other)
  Sender: FDA-Public Use
  Company Number: 2012AP002930

PATIENT
  Age: 61 Year
  Sex: Female

DRUGS (7)
  1. OMEPRAZOLE [Suspect]
     Indication: PRODUCT USED FOR UNKNOWN INDICATION
     Route: 048
  2. ADCAL-D3 (LEKOVIT CA) [Concomitant]
  3. ANTIBIOTICS (ANTIBIOTICS) [Concomitant]
  4. CETIRIZINE (CETIRIZINE) [Concomitant]
  5. CORTICOSTEROIDS (CORTICOSTEROIDS)? [Concomitant]
  6. SUCRALFATE (SUCRALFATE) UNKNOWN [Concomitant]
  7. VITAMIN B12?/00056201/ (CYANOCOBALAMIN) [Concomitant]

REACTIONS (42)
  - Anaemia [None]
  - Breast disorder female [None]
  - Dyspnoea [None]
  - Cellulitis [None]
  - Confusional state [None]
  - Depression [None]
  - Dry eye [None]
  - Dry mouth [None]
  - Eye haemorrhage [None]
  - Fall [None]
  - Pain [None]
  - Headache [None]
  - Intestinal haemorrhage [None]
  - Mouth haemorrhage [None]
  - Muscular weakness [None]
  - Gastrooesophageal reflux disease [None]
  - Osteopenia [None]
  - Erythema [None]
  - Skin burning sensation [None]
  - Local swelling [None]
  - Tremor [None]
  - Angiopathy [None]
  - Visual impairment [None]
  - Photopsia [None]
  - Vitamin D deficiency [None]
  - Vitreous detachment [None]
  - Weight decreased [None]
  - Angioedema [None]
  - Blood pressure decreased [None]
  - Body height decreased [None]
  - Bone density decreased [None]
  - Breast discolouration [None]
  - Eye disorder [None]
  - Haemorrhage [None]
  - Arthralgia [None]
  - Drug ineffective [None]
  - Photosensitivity reaction [None]
  - Sjogren^s syndrome [None]
  - Oedema peripheral [None]
  - Glossodynia [None]
  - Venous insufficiency [None]
  - Asthenia [None]
